FAERS Safety Report 7498614-8 (Version None)
Quarter: 2011Q2

REPORT INFORMATION
  Report Type: 
  Country: None (occurrence: None)
  Receive Date: 20110524
  Receipt Date: 20110504
  Transmission Date: 20111010
  Serious: Yes (Hospitalization, Other)
  Sender: FDA-Public Use
  Company Number: US-BAYER-2011-017607

PATIENT
  Age: 20 Year
  Sex: Female
  Weight: 72.562 kg

DRUGS (8)
  1. DIGOXIN [Concomitant]
     Indication: CARDIAC DISORDER
  2. YAZ [Suspect]
     Indication: ACNE
     Dosage: UNK
     Route: 048
     Dates: start: 20080801, end: 20091001
  3. YAZ [Suspect]
     Indication: ORAL CONTRACEPTION
  4. PLAVIX [Concomitant]
     Indication: THROMBOSIS PROPHYLAXIS
  5. HYDROXYUREA [Concomitant]
  6. ASPIRIN [Concomitant]
  7. DEVPAK (STEROID) [Concomitant]
     Indication: INFECTIOUS MONONUCLEOSIS
  8. IBUPROFEN [Concomitant]

REACTIONS (3)
  - PULMONARY EMBOLISM [None]
  - SPLENIC INFARCTION [None]
  - TACHYCARDIA [None]
